FAERS Safety Report 6376330-3 (Version None)
Quarter: 2009Q3

REPORT INFORMATION
  Report Type: 
  Country: None (occurrence: None)
  Receive Date: 20090925
  Receipt Date: 20090923
  Transmission Date: 20100115
  Serious: Yes (Other)
  Sender: FDA-Public Use
  Company Number: US-TEVA-210246USA

PATIENT

DRUGS (1)
  1. PROPOFOL [Suspect]
     Route: 042

REACTIONS (4)
  - INFLUENZA LIKE ILLNESS [None]
  - MENTAL IMPAIRMENT [None]
  - PRODUCT CONTAMINATION MICROBIAL [None]
  - URINARY TRACT INFECTION [None]
